FAERS Safety Report 6011516-9 (Version None)
Quarter: 2008Q4

REPORT INFORMATION
  Report Type: 
  Country: None (occurrence: None)
  Receive Date: 20081218
  Receipt Date: 20080902
  Transmission Date: 20090506
  Serious: No
  Sender: FDA-Public Use
  Company Number: US-ASTRAZENECA-2008UW18043

PATIENT
  Age: 73 Year
  Sex: Male

DRUGS (6)
  1. CRESTOR [Suspect]
     Indication: BLOOD CHOLESTEROL INCREASED
     Dosage: 5MG
     Route: 048
  2. CRESTOR [Suspect]
     Dosage: 10MG
     Route: 048
  3. DIOVAN [Concomitant]
  4. ASPIRIN [Concomitant]
  5. PRILOSEC [Concomitant]
     Route: 048
  6. ZETIA [Concomitant]

REACTIONS (3)
  - ARTHRALGIA [None]
  - BACK PAIN [None]
  - BLOOD GLUCOSE INCREASED [None]
